FAERS Safety Report 9190297 (Version 6)
Quarter: 2013Q3

REPORT INFORMATION
  Report Type: Report from Study
  Country: JP (occurrence: JP)
  Receive Date: 20130326
  Receipt Date: 20130904
  Transmission Date: 20140515
  Serious: Yes (Life-Threatening, Hospitalization)
  Sender: FDA-Public Use
  Company Number: JP-BRISTOL-MYERS SQUIBB COMPANY-18698407

PATIENT
  Age: 64 Year
  Sex: Female
  Weight: 39.7 kg

DRUGS (38)
  1. PACLITAXEL [Suspect]
     Indication: BREAST CANCER METASTATIC
     Dosage: LAST DOSE:13MAR13
     Route: 042
     Dates: start: 20130306, end: 2013
  2. BLINDED: BEVACIZUMAB [Suspect]
     Indication: BREAST CANCER METASTATIC
     Dosage: FREQ:Q2S
     Route: 042
     Dates: start: 20130306
  3. BLINDED: PLACEBO [Suspect]
     Indication: BREAST CANCER METASTATIC
     Dosage: LAST INF:06MAR2013
     Route: 042
     Dates: start: 20130306
  4. CHLOR-TRIMETON [Concomitant]
     Indication: PREMEDICATION
     Dosage: INJ
     Dates: start: 20130306, end: 20130313
  5. DECADRON PHOSPHATE [Concomitant]
     Indication: PREMEDICATION
     Dosage: INJ
     Dates: start: 20130306, end: 20130313
  6. ZANTAC [Concomitant]
     Indication: PREMEDICATION
     Dates: start: 20130306, end: 20130313
  7. NOVOLIN R [Concomitant]
     Indication: DIABETES MELLITUS
     Dosage: 06MAR13-09MAR13?21-MAR13-ONG
     Dates: start: 20130306
  8. CELECOXIB [Concomitant]
     Indication: BACK PAIN
     Dosage: TABS
     Dates: start: 20110906, end: 20130326
  9. COUGHCODE [Concomitant]
     Indication: COUGH
     Dates: start: 20130130
  10. CALONAL [Concomitant]
     Indication: BACK PAIN
     Dates: start: 20110906, end: 20130326
  11. RINDERON [Concomitant]
     Indication: DECREASED APPETITE
     Dosage: 13FEB13-13MAR13?30MAR13-ONG
     Dates: start: 20130213
  12. URSO [Concomitant]
     Indication: HEPATIC FUNCTION ABNORMAL
     Dosage: TABS
     Dates: start: 20130130, end: 20130326
  13. SELBEX [Concomitant]
     Indication: GASTRIC MUCOSAL LESION
     Dates: start: 20110823, end: 20130326
  14. SITAGLIPTIN PHOSPHATE [Concomitant]
     Indication: DIABETES MELLITUS
     Dates: start: 20130302, end: 20130317
  15. VOGLIBOSE [Concomitant]
     Indication: DIABETES MELLITUS
     Dosage: TABS
     Dates: start: 20130302, end: 20130317
  16. VEEN-D [Concomitant]
     Indication: DECREASED APPETITE
     Dosage: INJ?19MAR13-20MAR13:2 DYS
     Dates: start: 20130308, end: 20130310
  17. PRIMPERAN [Concomitant]
     Indication: NAUSEA
     Dosage: 2 DAYS
     Dates: start: 20130309, end: 20130310
  18. HACHIAZULE [Concomitant]
     Indication: STOMATITIS
     Dosage: GARGLE?13MAR13-18MAR13?28MAR13-ONGOING.
     Dates: start: 20130313
  19. SOLULACT [Concomitant]
     Indication: DECREASED APPETITE
     Dates: start: 20130316
  20. SOLULACT [Concomitant]
     Indication: PYREXIA
     Dates: start: 20130316
  21. LOXONIN [Concomitant]
     Indication: PYREXIA
     Dates: start: 20130316, end: 20130316
  22. HYALEIN [Concomitant]
     Indication: DRY EYE
     Route: 047
     Dates: start: 20130311, end: 20130315
  23. JANUVIA [Concomitant]
     Indication: DIABETES MELLITUS
     Dates: start: 20130320, end: 20130320
  24. SOLU-MEDROL [Concomitant]
     Indication: PULMONARY OEDEMA
     Dates: start: 20130321, end: 20130323
  25. PREDONINE [Concomitant]
     Indication: PULMONARY OEDEMA
     Dates: start: 20130324, end: 20130329
  26. CEFEPIME HCL [Concomitant]
     Indication: PNEUMONIA
     Dosage: CEFEPIME DIHYDROCHLORIDE
     Route: 042
     Dates: start: 20130321, end: 20130329
  27. LASIX [Concomitant]
     Indication: OEDEMA
     Dates: start: 20130325, end: 20130325
  28. ALDACTONE [Concomitant]
     Indication: OEDEMA
     Dates: start: 20130325, end: 20130325
  29. SOLU-CORTEF [Concomitant]
  30. CEFTRIAXONE SODIUM [Concomitant]
     Indication: PYREXIA
     Dates: start: 20130318, end: 20130320
  31. GAMOFA [Concomitant]
     Indication: PROPHYLAXIS AGAINST GASTROINTESTINAL ULCER
     Dates: start: 20130321, end: 20130325
  32. DESLANOSIDE [Concomitant]
     Indication: TACHYCARDIA PAROXYSMAL
     Dates: start: 20130321, end: 20130321
  33. DEXAMETHASONE [Concomitant]
     Indication: STOMATITIS
     Route: 048
  34. TAKEPRON [Concomitant]
     Dates: start: 20130326, end: 20130326
  35. AZUNOL [Concomitant]
     Indication: PROCTALGIA
     Dates: start: 20130328, end: 20130328
  36. MOHRUS [Concomitant]
     Indication: MALAISE
     Dosage: 28MAR2013-28MAR2013?30MAR2013-30MAR2013
     Dates: start: 20130328, end: 20130330
  37. SERENACE [Concomitant]
     Indication: INSOMNIA
     Dates: start: 20130329, end: 20130331
  38. ZOMETA [Concomitant]
     Indication: METASTASES TO BONE
     Dates: start: 20110906

REACTIONS (5)
  - Pulmonary oedema [Not Recovered/Not Resolved]
  - Loss of consciousness [Recovered/Resolved]
  - Vomiting [Recovered/Resolved]
  - Malaise [Not Recovered/Not Resolved]
  - Decreased appetite [Not Recovered/Not Resolved]
